FAERS Safety Report 7849952-8 (Version None)
Quarter: 2011Q4

REPORT INFORMATION
  Report Type: 
  Country: None (occurrence: None)
  Receive Date: 20111026
  Receipt Date: 20111017
  Transmission Date: 20120403
  Serious: No
  Sender: FDA-Public Use
  Company Number: US-US-EMD SERONO, INC.-7001942

PATIENT
  Sex: Female
  Weight: 63 kg

DRUGS (5)
  1. NUVIGIL [Concomitant]
     Indication: FATIGUE
     Dates: start: 20110622
  2. ALPRAZOLAM [Concomitant]
  3. CYMBALTA [Concomitant]
  4. REBIF [Suspect]
     Indication: MULTIPLE SCLEROSIS
     Route: 058
     Dates: start: 20060322
  5. IMITREX NS [Concomitant]
     Indication: MIGRAINE

REACTIONS (4)
  - GASTROOESOPHAGEAL REFLUX DISEASE [None]
  - MALAISE [None]
  - INJECTION SITE ERYTHEMA [None]
  - INFLUENZA LIKE ILLNESS [None]
